FAERS Safety Report 6624326-6 (Version None)
Quarter: 2010Q1

REPORT INFORMATION
  Report Type: 
  Country: None (occurrence: None)
  Receive Date: 20100310
  Receipt Date: 20091012
  Transmission Date: 20100710
  Serious: No
  Sender: FDA-Public Use
  Company Number: US-BIOGENIDEC-2009BI032777

PATIENT
  Age: 46 Year
  Sex: Male

DRUGS (2)
  1. AVONEX [Suspect]
     Indication: MULTIPLE SCLEROSIS
     Route: 030
     Dates: start: 20040101
  2. FLU VACCINE [Concomitant]
     Indication: INFLUENZA IMMUNISATION
     Dates: start: 20080101, end: 20080101

REACTIONS (3)
  - COGNITIVE DISORDER [None]
  - STRESS [None]
  - VACCINATION COMPLICATION [None]
